FAERS Safety Report 22656310 (Version 1)
Quarter: 2023Q2

REPORT INFORMATION
  Report Type: Spontaneous
  Country: US (occurrence: US)
  Receive Date: 20230629
  Receipt Date: 20230629
  Transmission Date: 20230722
  Serious: No
  Sender: FDA-Public Use
  Company Number: US-BoehringerIngelheim-2023-BI-247013

PATIENT

DRUGS (2)
  1. GILOTRIF [Suspect]
     Active Substance: AFATINIB
     Indication: Product used for unknown indication
  2. GILOTRIF [Suspect]
     Active Substance: AFATINIB

REACTIONS (2)
  - Pustule [Unknown]
  - Gastrointestinal disorder [Unknown]
